FAERS Safety Report 7238999-0 (Version None)
Quarter: 2011Q1

REPORT INFORMATION
  Report Type: 
  Country: None (occurrence: None)
  Receive Date: 20110119
  Receipt Date: 20110119
  Transmission Date: 20110831
  Serious: Yes (Hospitalization)
  Sender: FDA-Public Use
  Company Number: None

PATIENT
  Age: 72 Year
  Sex: Male
  Weight: 87.9 kg

DRUGS (1)
  1. DECITABINE [Suspect]
     Indication: MYELODYSPLASTIC SYNDROME
     Dosage: 0.2 MG/KG SQ 1-2X WEEKLY
     Route: 058
     Dates: start: 20101117

REACTIONS (3)
  - BODY TEMPERATURE INCREASED [None]
  - WHITE BLOOD CELL COUNT ABNORMAL [None]
  - NEUTROPENIA [None]
